FAERS Safety Report 15907509 (Version 2)
Quarter: 2019Q1

REPORT INFORMATION
  Report Type: Spontaneous
  Country: US (occurrence: US)
  Receive Date: 20190204
  Receipt Date: 20190212
  Transmission Date: 20190417
  Serious: No
  Sender: FDA-Public Use
  Company Number: US-SA-2019SA021734

PATIENT
  Age: 77 Year
  Sex: Female

DRUGS (1)
  1. LANTUS SOLOSTAR [Suspect]
     Active Substance: INSULIN GLARGINE
     Dosage: 12 U, QD

REACTIONS (6)
  - Headache [Unknown]
  - Product dose omission [Unknown]
  - Malaise [Unknown]
  - Device operational issue [Unknown]
  - Blood glucose increased [Unknown]
  - Tremor [Unknown]
